FAERS Safety Report 9216337 (Version 2)
Quarter: 2013Q2

REPORT INFORMATION
  Report Type: Spontaneous
  Country: CO (occurrence: CO)
  Receive Date: 20130408
  Receipt Date: 20130514
  Transmission Date: 20140414
  Serious: Yes (Death, Other)
  Sender: FDA-Public Use
  Company Number: PHHY2013CO033019

PATIENT
  Sex: Female

DRUGS (6)
  1. AFINITOR [Suspect]
     Indication: BREAST CANCER
     Route: 048
  2. AFINITOR [Suspect]
     Route: 048
  3. HORMONES [Concomitant]
  4. METFORMIN [Concomitant]
  5. EXEMESTANE [Concomitant]
  6. INSULIN [Concomitant]
     Dosage: UNK

REACTIONS (8)
  - Malignant neoplasm progression [Fatal]
  - Breast cancer [Fatal]
  - Renal impairment [Fatal]
  - Hyperglycaemia [Fatal]
  - Dehydration [Fatal]
  - Metabolic disorder [None]
  - Blood triglycerides increased [Recovered/Resolved]
  - Blood cholesterol increased [Recovered/Resolved]
